FAERS Safety Report 9400218 (Version 3)
Quarter: 2013Q3

REPORT INFORMATION
  Report Type: Spontaneous
  Country: FR (occurrence: None)
  Receive Date: 20130520
  Receipt Date: 20130723
  Transmission Date: 20140515
  Serious: Yes (Hospitalization, Other)
  Sender: FDA-Public Use
  Company Number: 2013FR001524

PATIENT
  Age: 66 Year
  Sex: Male
  Weight: 66 kg

DRUGS (8)
  1. PONATINIB [Suspect]
     Indication: CHROMOSOME ANALYSIS ABNORMAL
     Route: 048
     Dates: start: 20120811, end: 20130125
  2. PONATINIB [Suspect]
     Indication: ACUTE LYMPHOCYTIC LEUKAEMIA
     Route: 048
     Dates: start: 20120811, end: 20130125
  3. ALLOPURINOL [Concomitant]
  4. ZELLTREX (VALACICLOVIR HYDROCHLORIDE) [Concomitant]
  5. LASILIX (FUROSEMIDE) [Concomitant]
  6. SECTRAL (ACEBUTOLOL HYDROCHLORIDE) [Concomitant]
  7. AMLODIPINE (AMLODIPINE MALEATE) [Concomitant]
  8. IRBESARTAN (IRBESARTAN) [Concomitant]

REACTIONS (3)
  - Renal artery occlusion [None]
  - Blood pressure increased [None]
  - Blood creatinine increased [None]
